FAERS Safety Report 19383674 (Version 2)
Quarter: 2021Q3

REPORT INFORMATION
  Report Type: Spontaneous
  Country: US (occurrence: US)
  Receive Date: 20210607
  Receipt Date: 20210816
  Transmission Date: 20211014
  Serious: Yes (Other)
  Sender: FDA-Public Use
  Company Number: US-VIFOR (INTERNATIONAL) INC.-VIT-2021-04861

PATIENT
  Age: 38 Year
  Sex: Male

DRUGS (1)
  1. VELTASSA [Suspect]
     Active Substance: PATIROMER
     Indication: HYPERKALAEMIA
     Dosage: (8.4 GRAMS OF 2 PACKETS)
     Route: 048
     Dates: start: 20170913

REACTIONS (3)
  - Surgery [Not Recovered/Not Resolved]
  - Product dose omission issue [Not Recovered/Not Resolved]
  - Haemorrhoid operation [Not Recovered/Not Resolved]

NARRATIVE: CASE EVENT DATE: 20210606
